FAERS Safety Report 8611429-X (Version None)
Quarter: 2012Q3

REPORT INFORMATION
  Report Type: 
  Country: None (occurrence: None)
  Receive Date: 20120806
  Receipt Date: 20120620
  Transmission Date: 20120928
  Serious: Yes (Other)
  Sender: FDA-Public Use
  Company Number: 2012032561

PATIENT
  Sex: Female

DRUGS (2)
  1. ZEMAIRA [Suspect]
  2. ARALAST ALPHA-1-ANTITRYPSIN) [Suspect]
     Dates: start: 20100601, end: 20100801

REACTIONS (3)
  - PYREXIA [None]
  - DEVICE RELATED INFECTION [None]
  - CHILLS [None]
